FAERS Safety Report 21934969 (Version 2)
Quarter: 2023Q1

REPORT INFORMATION
  Report Type: Report from Study
  Country: US (occurrence: None)
  Receive Date: 20230201
  Receipt Date: 20230307
  Transmission Date: 20230418
  Serious: Yes (Hospitalization)
  Sender: FDA-Public Use
  Company Number: US-ROCHE-3158481

PATIENT
  Age: 79 Year
  Sex: Male
  Weight: 111.3 kg

DRUGS (19)
  1. ATEZOLIZUMAB [Suspect]
     Active Substance: ATEZOLIZUMAB
     Indication: Hormone-refractory prostate cancer
     Dosage: ON 07/JUL/2022, MOST RECENT DOSE OF ATEZOLIZUMAB PRIOR TO THE EVENTS. ON 11/NOV/2022 ATEZOLIZUMAB RE
     Route: 042
     Dates: start: 20200521, end: 20220726
  2. CABOZANTINIB [Suspect]
     Active Substance: CABOZANTINIB
     Indication: Hormone-refractory prostate cancer
     Dosage: ON 18/JUN/2020, MOST RECENR DOSE OF CABOZANTINIB PRIOR TO EVENTS.
     Route: 048
     Dates: start: 20200521, end: 20200618
  3. ALPHA LIPOIC ACID [Concomitant]
     Active Substance: .ALPHA.-LIPOIC ACID
  4. FENOFIBRATE [Concomitant]
     Active Substance: FENOFIBRATE
  5. GLIPIZIDE [Concomitant]
     Active Substance: GLIPIZIDE
  6. HUMALOG [Concomitant]
     Active Substance: INSULIN LISPRO
  7. KEPPRA [Concomitant]
     Active Substance: LEVETIRACETAM
  8. LATANOPROST [Concomitant]
     Active Substance: LATANOPROST
  9. LISINOPRIL [Concomitant]
     Active Substance: LISINOPRIL
  10. LUPRON [Concomitant]
     Active Substance: LEUPROLIDE ACETATE
  11. MEDROL [Concomitant]
     Active Substance: METHYLPREDNISOLONE
  12. PRIMADOPHILUS BIFIDUS [Concomitant]
  13. ROSUVASTATIN CALCIUM [Concomitant]
     Active Substance: ROSUVASTATIN CALCIUM
  14. TOUJEO [Concomitant]
     Active Substance: INSULIN GLARGINE
  15. HYDROXOCOBALAMIN [Concomitant]
     Active Substance: HYDROXOCOBALAMIN
  16. VITAMIN C [Concomitant]
     Active Substance: ASCORBIC ACID
  17. VITAMIN D3 [Concomitant]
     Active Substance: CHOLECALCIFEROL
  18. DIBASIC POTASSIUM PHOSPHATE [Concomitant]
     Active Substance: DIBASIC POTASSIUM PHOSPHATE
  19. ELIQUIS [Concomitant]
     Active Substance: APIXABAN

REACTIONS (2)
  - Atrioventricular block complete [Recovered/Resolved with Sequelae]
  - Cholecystitis acute [Recovered/Resolved]

NARRATIVE: CASE EVENT DATE: 20220726
